FAERS Safety Report 10542423 (Version 2)
Quarter: 2014Q4

REPORT INFORMATION
  Report Type: Spontaneous
  Country: AU (occurrence: AU)
  Receive Date: 20141026
  Receipt Date: 20141104
  Transmission Date: 20150529
  Serious: Yes (Other)
  Sender: FDA-Public Use
  Company Number: PHHY2014AU135308

PATIENT
  Sex: Female
  Weight: 59 kg

DRUGS (2)
  1. EVEROLIMUS [Suspect]
     Active Substance: EVEROLIMUS
     Indication: OFF LABEL USE
  2. EVEROLIMUS [Suspect]
     Active Substance: EVEROLIMUS
     Indication: LYMPHANGIOLEIOMYOMATOSIS
     Dosage: 1.5 MG, BID
     Route: 048
     Dates: start: 20110602

REACTIONS (1)
  - Cholelithiasis [Not Recovered/Not Resolved]
